FAERS Safety Report 11727174 (Version 1)
Quarter: 2015Q4

REPORT INFORMATION
  Report Type: Spontaneous
  Country: US (occurrence: US)
  Receive Date: 20151112
  Receipt Date: 20151112
  Transmission Date: 20160304
  Serious: Yes (Other)
  Sender: FDA-Public Use
  Company Number: US-BEH-2015055583

PATIENT
  Sex: Female
  Weight: 69 kg

DRUGS (14)
  1. DIPHENHYDRAMINE. [Concomitant]
     Active Substance: DIPHENHYDRAMINE
  2. ARMOUR THYROID [Concomitant]
     Active Substance: THYROID, PORCINE\THYROID, UNSPECIFIED
  3. LEVOTHROID [Concomitant]
     Active Substance: LEVOTHYROXINE SODIUM
  4. ASPIRIN EC [Concomitant]
     Active Substance: ASPIRIN
  5. AMBIEN [Concomitant]
     Active Substance: ZOLPIDEM TARTRATE
  6. FERROUS SULFATE EC [Concomitant]
  7. ZYRTEC [Concomitant]
     Active Substance: CETIRIZINE HYDROCHLORIDE
  8. HIZENTRA [Suspect]
     Active Substance: HUMAN IMMUNOGLOBULIN G
     Dosage: ??-JAN-2011
     Route: 058
  9. PROVENTIL [Concomitant]
     Active Substance: ALBUTEROL
  10. SINGULAIR [Concomitant]
     Active Substance: MONTELUKAST SODIUM
  11. HIZENTRA [Suspect]
     Active Substance: HUMAN IMMUNOGLOBULIN G
     Indication: IMMUNODEFICIENCY COMMON VARIABLE
     Dosage: ??-JAN-2011
  12. EPIPEN [Concomitant]
     Active Substance: EPINEPHRINE
  13. LMX [Concomitant]
     Active Substance: LIDOCAINE
  14. METFORMIN HCL [Concomitant]
     Active Substance: METFORMIN HYDROCHLORIDE

REACTIONS (2)
  - Drug dose omission [Unknown]
  - Epstein-Barr virus infection [Unknown]
